FAERS Safety Report 9602546 (Version 4)
Quarter: 2013Q4

REPORT INFORMATION
  Report Type: Spontaneous
  Country: US (occurrence: US)
  Receive Date: 20131007
  Receipt Date: 20131125
  Transmission Date: 20140711
  Serious: Yes (Other)
  Sender: FDA-Public Use
  Company Number: US-PFIZER INC-2013283426

PATIENT
  Age: 70 Year
  Sex: Male
  Weight: 90.7 kg

DRUGS (9)
  1. SUTENT [Suspect]
     Indication: RENAL CELL CARCINOMA
     Dosage: 50 MG, DAILY FOR 28 DAYS ON AND 14 DAYS OFF (CYCLIC)
  2. SUTENT [Suspect]
     Dosage: 50 MG, 1X/DAY, (4 WEAKS EVERY 6 WEAKS)
     Route: 048
     Dates: start: 201307
  3. OXYCODONE [Concomitant]
     Dosage: UNK
  4. HYDROCODONE [Concomitant]
     Dosage: UNK
  5. SPIROLACTONE [Concomitant]
     Dosage: UNK
  6. CARVEDILOL [Concomitant]
     Dosage: UNK
  7. LANTUS [Concomitant]
     Dosage: UNK
  8. FISH OIL [Concomitant]
     Dosage: UNK
  9. XGEVA [Concomitant]
     Dosage: UNK, MONTHLY

REACTIONS (17)
  - Macular degeneration [Recovering/Resolving]
  - Nausea [Recovering/Resolving]
  - Vomiting [Recovering/Resolving]
  - Diarrhoea [Recovering/Resolving]
  - Asthenia [Recovering/Resolving]
  - Epistaxis [Recovering/Resolving]
  - Dysgeusia [Recovering/Resolving]
  - Fatigue [Recovering/Resolving]
  - Blood glucose fluctuation [Recovering/Resolving]
  - Blood glucose decreased [Recovering/Resolving]
  - Blood pressure increased [Recovering/Resolving]
  - Oral pain [Recovering/Resolving]
  - Hyperaesthesia [Recovering/Resolving]
  - Skin lesion [Recovering/Resolving]
  - Pain of skin [Recovering/Resolving]
  - Vision blurred [Recovering/Resolving]
  - Pain [Recovering/Resolving]
